FAERS Safety Report 6234018-3 (Version None)
Quarter: 2009Q2

REPORT INFORMATION
  Report Type: 
  Country: None (occurrence: None)
  Receive Date: 20090618
  Receipt Date: 20090609
  Transmission Date: 20091009
  Serious: Yes (Hospitalization)
  Sender: FDA-Public Use
  Company Number: US-BIOGENIDEC-2009BI014543

PATIENT
  Age: 55 Year
  Sex: Female

DRUGS (1)
  1. AVONEX [Suspect]
     Indication: MULTIPLE SCLEROSIS
     Route: 030
     Dates: start: 20020418

REACTIONS (11)
  - ABASIA [None]
  - ANXIETY DISORDER [None]
  - ATAXIA [None]
  - DEPRESSION [None]
  - ELECTROLYTE IMBALANCE [None]
  - HEADACHE [None]
  - HYPERTENSION [None]
  - MALNUTRITION [None]
  - MULTIPLE SCLEROSIS [None]
  - NEURALGIA [None]
  - SPASTIC PARAPLEGIA [None]
